FAERS Safety Report 9725617 (Version 1)
Quarter: 2013Q4

REPORT INFORMATION
  Report Type: Spontaneous
  Country: US (occurrence: None)
  Receive Date: 20131202
  Receipt Date: 20131202
  Transmission Date: 20140711
  Serious: Yes (Other)
  Sender: FDA-Public Use
  Company Number: None

PATIENT
  Age: 65 Year
  Sex: Male
  Weight: 77 kg

DRUGS (1)
  1. SYNTHROID 112 MCG [Suspect]
     Indication: HYPOTHYROIDISM
     Route: 048
     Dates: start: 20131121, end: 20131122

REACTIONS (2)
  - Insomnia [None]
  - Product physical issue [None]
